FAERS Safety Report 7865579-6 (Version None)
Quarter: 2011Q4

REPORT INFORMATION
  Report Type: 
  Country: None (occurrence: None)
  Receive Date: 20111028
  Receipt Date: 20110119
  Transmission Date: 20120403
  Serious: No
  Sender: FDA-Public Use
  Company Number: US-GLAXOSMITHKLINE-A0907390A

PATIENT
  Age: 66 Year
  Sex: Female

DRUGS (9)
  1. FLAX SEED OIL [Concomitant]
  2. ADVAIR DISKUS 100/50 [Suspect]
     Indication: ASTHMA
     Dosage: 1PUFF TWICE PER DAY
     Route: 055
     Dates: start: 20100501
  3. GLUCOSAMINE SULFATE [Concomitant]
  4. MULTI-VITAMIN [Concomitant]
  5. FOLIC ACID [Concomitant]
  6. CALCIUM/MAGNESIUM [Concomitant]
  7. HYALURONIC ACID [Concomitant]
  8. UBIQUINONE [Concomitant]
  9. SINGULAIR [Concomitant]

REACTIONS (3)
  - DYSPNOEA [None]
  - DRUG EFFECT DECREASED [None]
  - PRODUCT QUALITY ISSUE [None]
